FAERS Safety Report 4658476-0 (Version None)
Quarter: 2005Q2

REPORT INFORMATION
  Report Type: 
  Country: None (occurrence: None)
  Receive Date: 20050511
  Receipt Date: 20050428
  Transmission Date: 20051028
  Serious: Yes (Hospitalization)
  Sender: FDA-Public Use
  Company Number: FR-GLAXOSMITHKLINE-B0379809A

PATIENT
  Age: 47 Year
  Sex: Male
  Weight: 79 kg

DRUGS (4)
  1. TELZIR [Suspect]
     Indication: HIV INFECTION
     Dosage: 1TAB TWICE PER DAY
     Route: 048
     Dates: start: 20040914, end: 20041018
  2. EPIVIR [Suspect]
     Indication: HIV INFECTION
     Dosage: 1TAB TWICE PER DAY
     Route: 048
     Dates: start: 20040914
  3. VIREAD [Suspect]
     Indication: HIV INFECTION
     Dosage: 1TAB PER DAY
     Route: 048
     Dates: start: 20040914, end: 20041018
  4. NORVIR [Suspect]
     Indication: HIV INFECTION
     Dosage: 1CAP TWICE PER DAY
     Route: 048
     Dates: start: 20040914

REACTIONS (1)
  - PANCREATITIS [None]
